FAERS Safety Report 4609205-8 (Version None)
Quarter: 2005Q1

REPORT INFORMATION
  Report Type: 
  Country: None (occurrence: None)
  Receive Date: 20050315
  Receipt Date: 20050305
  Transmission Date: 20050727
  Serious: Yes (Hospitalization, Disabling)
  Sender: FDA-Public Use
  Company Number: IL-MERCK-0503ISR00008

PATIENT
  Age: 64 Year
  Sex: Male

DRUGS (3)
  1. VIOXX [Suspect]
     Indication: PAIN
     Route: 048
     Dates: start: 19990101, end: 20040101
  2. VIOXX [Suspect]
     Route: 048
     Dates: start: 20040301, end: 20040401
  3. VIOXX [Suspect]
     Route: 048
     Dates: end: 20041001

REACTIONS (3)
  - CHEST PAIN [None]
  - HEART RATE IRREGULAR [None]
  - POOR PERIPHERAL CIRCULATION [None]
